FAERS Safety Report 8891571 (Version 1)
Quarter: 2012Q4

REPORT INFORMATION
  Report Type: 
  Country: US (occurrence: US)
  Receive Date: 20121107
  Receipt Date: 20121107
  Transmission Date: 20130627
  Serious: No
  Sender: FDA-Public Use
  Company Number: US-AMGEN-USASP2011058890

PATIENT
  Sex: Female
  Weight: 86.17 kg

DRUGS (12)
  1. ENBREL [Suspect]
     Indication: PSORIASIS
     Dosage: 50 mg, qwk
  2. ENBREL [Suspect]
     Indication: PSORIATIC ARTHROPATHY
  3. LOVASTATIN [Concomitant]
     Dosage: 40 mg, UNK
  4. LOSARTAN POTASSIUM [Concomitant]
     Dosage: 25 mg, UNK
  5. CALCIUM 500+D [Concomitant]
  6. FISH OIL [Concomitant]
  7. VITAMIN D [Concomitant]
     Dosage: 1000 UNK, UNK
  8. FLAXSEED OIL [Concomitant]
  9. ASPIRIN [Concomitant]
     Dosage: 81 mg, UNK
  10. MULTIVITAMIN AND MINERAL [Concomitant]
  11. NIACIN [Concomitant]
     Dosage: 250 mg, UNK
  12. FERROUS SULFATE [Concomitant]
     Dosage: 40 mg, UNK

REACTIONS (2)
  - Malaise [Unknown]
  - Therapeutic response decreased [Unknown]
